FAERS Safety Report 9643421 (Version 1)
Quarter: 2013Q4

REPORT INFORMATION
  Report Type: Spontaneous
  Country: JP (occurrence: None)
  Receive Date: 20131022
  Receipt Date: 20131022
  Transmission Date: 20140711
  Serious: Yes (Other)
  Sender: FDA-Public Use
  Company Number: SYM-2013-11655

PATIENT
  Sex: 0

DRUGS (4)
  1. FLUOROURACIL [Suspect]
     Indication: OESOPHAGEAL CARCINOMA
  2. DOCETAXEL [Suspect]
     Indication: OESOPHAGEAL CARCINOMA
     Dosage: EVERY CYCLE
  3. NEDAPLATIN [Suspect]
     Indication: OESOPHAGEAL CARCINOMA
  4. THERAPEUTIC RADIOPHARMACEUTICALS [Suspect]
     Indication: OESOPHAGEAL CARCINOMA

REACTIONS (1)
  - Tumour haemorrhage [None]
